FAERS Safety Report 11862716 (Version 1)
Quarter: 2015Q4

REPORT INFORMATION
  Report Type: Spontaneous
  Country: US (occurrence: None)
  Receive Date: 20151222
  Receipt Date: 20151222
  Transmission Date: 20160305
  Serious: No
  Sender: FDA-Public Use
  Company Number: None

PATIENT
  Age: 68 Year
  Sex: Female
  Weight: 54.89 kg

DRUGS (11)
  1. D3 [Concomitant]
     Active Substance: 25-HYDROXYCHOLECALCIFEROL, 5-TRANS-
  2. KRILL OIL [Concomitant]
     Active Substance: DIETARY SUPPLEMENT
  3. LUTEIN [Concomitant]
     Active Substance: LUTEIN
  4. MULTI--VITAMIN CENTRUM SILVER [Concomitant]
  5. BIOTIN [Concomitant]
     Active Substance: BIOTIN
  6. LEVOTHYROXINE. [Concomitant]
     Active Substance: LEVOTHYROXINE
  7. C [Concomitant]
  8. PROBIOTIC [Concomitant]
     Active Substance: PROBIOTICS NOS
  9. VIT B-12 [Concomitant]
  10. PROLIA [Suspect]
     Active Substance: DENOSUMAB
     Indication: OSTEOPOROSIS
     Dosage: PROLIA SOL 60 MG/ML?1 SYRINGE VIAL FOR INJECTION?RECCOMERIDED TWICE A YEAR?INJECTION IN ARM
     Dates: start: 20151023, end: 20151023
  11. HRT=PROGESTERONE + ESTRIOL/TERBETCIONE [Concomitant]

REACTIONS (5)
  - Muscular weakness [None]
  - Arthralgia [None]
  - Gait disturbance [None]
  - Pain in extremity [None]
  - Insomnia [None]

NARRATIVE: CASE EVENT DATE: 20151023
